FAERS Safety Report 12093084 (Version 3)
Quarter: 2017Q1

REPORT INFORMATION
  Report Type: Spontaneous
  Country: US (occurrence: US)
  Receive Date: 20160219
  Receipt Date: 20170222
  Transmission Date: 20170428
  Serious: No
  Sender: FDA-Public Use
  Company Number: US-TEVA-568208USA

PATIENT
  Sex: Female

DRUGS (1)
  1. AMPHETAMINE W/DEXTROAMPHETAMINE [Suspect]
     Active Substance: AMPHETAMINE SULFATE\DEXTROAMPHETAMINE
     Indication: ATTENTION DEFICIT/HYPERACTIVITY DISORDER
     Dosage: 40 MILLIGRAM DAILY;
     Route: 048

REACTIONS (3)
  - Feeling abnormal [Recovered/Resolved]
  - Disturbance in attention [Unknown]
  - Somnolence [Unknown]

NARRATIVE: CASE EVENT DATE: 2015
